FAERS Safety Report 5626388-1 (Version None)
Quarter: 2008Q1

REPORT INFORMATION
  Report Type: 
  Country: None (occurrence: None)
  Receive Date: 20080214
  Receipt Date: 20080130
  Transmission Date: 20080703
  Serious: Yes (Hospitalization)
  Sender: FDA-Public Use
  Company Number: FR-ROCHE-545133

PATIENT
  Age: 71 Year
  Sex: Female

DRUGS (2)
  1. XELODA [Suspect]
     Dosage: RECEIVED ON DAY 1-DAY14.
     Route: 048
     Dates: start: 20070316
  2. DENOSUMAB [Concomitant]
     Dates: start: 20070316

REACTIONS (2)
  - COGNITIVE DISORDER [None]
  - ENCEPHALOPATHY [None]
